FAERS Safety Report 5221643-1 (Version None)
Quarter: 2007Q1

REPORT INFORMATION
  Report Type: 
  Country: None (occurrence: None)
  Receive Date: 20070129
  Receipt Date: 20070117
  Transmission Date: 20070707
  Serious: Yes (Other)
  Sender: FDA-Public Use
  Company Number: PHEH2007US00977

PATIENT
  Sex: Female

DRUGS (1)
  1. ZOMETA [Suspect]
     Indication: MULTIPLE MYELOMA

REACTIONS (5)
  - BONE DISORDER [None]
  - INFECTION [None]
  - MASTICATION DISORDER [None]
  - OSTEONECROSIS [None]
  - PAIN [None]
